FAERS Safety Report 25549805 (Version 3)
Quarter: 2025Q3

REPORT INFORMATION
  Report Type: Report from Study
  Country: US (occurrence: US)
  Receive Date: 20250714
  Receipt Date: 20250807
  Transmission Date: 20251021
  Serious: No
  Sender: MALLINCKRODT
  Company Number: US-MALLINCKRODT-MNK202504222

PATIENT
  Sex: Female

DRUGS (1)
  1. CORTICOTROPIN [Suspect]
     Active Substance: CORTICOTROPIN
     Indication: Conjunctivitis
     Route: 058

REACTIONS (6)
  - Lacrimation increased [Unknown]
  - Eye swelling [Unknown]
  - Eye discharge [Unknown]
  - Illness [Unknown]
  - Blood glucose increased [Unknown]
  - Drug ineffective [Unknown]
